FAERS Safety Report 10224781 (Version 1)
Quarter: 2014Q2

REPORT INFORMATION
  Report Type: Spontaneous
  Country: US (occurrence: US)
  Receive Date: 20140609
  Receipt Date: 20140609
  Transmission Date: 20141212
  Serious: No
  Sender: FDA-Public Use
  Company Number: US-PFIZER INC-2014157384

PATIENT
  Age: 82 Year
  Sex: Male
  Weight: 77.1 kg

DRUGS (2)
  1. TOVIAZ [Suspect]
     Indication: BLADDER SPASM
     Dosage: 8 MG, DAILY
     Dates: start: 20140603
  2. TOVIAZ [Suspect]
     Indication: URINARY INCONTINENCE

REACTIONS (2)
  - Dry mouth [Unknown]
  - Constipation [Unknown]
